FAERS Safety Report 5017147-1 (Version None)
Quarter: 2006Q2

REPORT INFORMATION
  Report Type: 
  Country: None (occurrence: None)
  Receive Date: 20060602
  Receipt Date: 20060518
  Transmission Date: 20061013
  Serious: Yes (Life-Threatening, Hospitalization, Other)
  Sender: FDA-Public Use
  Company Number: US-BOEHRINGER INGELHEIM PHARMACEUTICALS, INC.-2006-BP-05635BP

PATIENT
  Age: 73 Year
  Sex: Male

DRUGS (16)
  1. AGGRENOX [Suspect]
     Indication: TRANSIENT ISCHAEMIC ATTACK
     Route: 048
     Dates: start: 20060515, end: 20060515
  2. AGGRENOX [Suspect]
     Indication: CEREBROVASCULAR ACCIDENT PROPHYLAXIS
  3. GLIPIZIDE [Concomitant]
     Indication: DIABETES MELLITUS
  4. NIFEDIPINE [Concomitant]
     Indication: HYPERTENSION
  5. LISINOPRIL [Concomitant]
     Indication: HYPERTENSION
  6. SIMVASTATIN [Concomitant]
     Indication: BLOOD CHOLESTEROL INCREASED
  7. LASIX [Concomitant]
  8. ADVAIR DISKUS 100/50 [Concomitant]
     Indication: CHRONIC OBSTRUCTIVE PULMONARY DISEASE
  9. ALBUTEROL SULFATE AUTOHALER [Concomitant]
     Indication: CHRONIC OBSTRUCTIVE PULMONARY DISEASE
  10. HYDROCODONE [Concomitant]
  11. ULTRAM [Concomitant]
  12. REGULAR INSULIN [Concomitant]
     Indication: DIABETES MELLITUS
  13. CATAPRES-TTS-1 [Concomitant]
     Indication: HYPERTENSION
  14. XOPENEX [Concomitant]
     Route: 055
  15. DUONEB [Concomitant]
  16. OXYGEN [Concomitant]

REACTIONS (7)
  - ANAPHYLACTIC REACTION [None]
  - BLOOD PRESSURE INCREASED [None]
  - DOCUMENTED HYPERSENSITIVITY TO ADMINISTERED DRUG [None]
  - HYPERGLYCAEMIA [None]
  - HYPOGLYCAEMIA [None]
  - RESPIRATORY DISTRESS [None]
  - WHEEZING [None]
